FAERS Safety Report 8239863-0 (Version None)
Quarter: 2012Q1

REPORT INFORMATION
  Report Type: 
  Country: None (occurrence: None)
  Receive Date: 20120328
  Receipt Date: 20120316
  Transmission Date: 20120608
  Serious: Yes (Hospitalization)
  Sender: FDA-Public Use
  Company Number: PHHY2011JP76086

PATIENT
  Sex: Female

DRUGS (14)
  1. TASIGNA [Suspect]
     Indication: CHRONIC MYELOID LEUKAEMIA
     Dosage: 800 MG, QD
     Route: 048
     Dates: start: 20110319, end: 20110320
  2. TASIGNA [Suspect]
     Dosage: 200 MG, QD
     Route: 048
     Dates: start: 20110323, end: 20110324
  3. TASIGNA [Suspect]
     Dosage: 200 MG,
     Dates: start: 20111226, end: 20120106
  4. PREDNISOLONE [Concomitant]
     Indication: RHEUMATOID ARTHRITIS
     Dosage: 5 MG, QD
     Route: 048
     Dates: start: 20110502
  5. TASIGNA [Suspect]
     Dosage: 200 MG,
     Dates: start: 20120113
  6. LANSOPRAZOLE [Concomitant]
     Indication: RHEUMATOID ARTHRITIS
     Dosage: 30 MG, QD
     Route: 048
     Dates: start: 20110319
  7. LOXONIN [Concomitant]
     Indication: RHEUMATOID ARTHRITIS
     Dosage: 180 MG, QD
     Route: 048
     Dates: start: 20110319
  8. DECADRON [Concomitant]
     Dosage: UNK UKN, UNK
  9. TASIGNA [Suspect]
     Dosage: 400 MG, QD
     Route: 048
     Dates: start: 20110325, end: 20110830
  10. TASIGNA [Suspect]
     Dosage: 200 MG,
     Dates: start: 20111021, end: 20111209
  11. ALENDRONATE SODIUM [Concomitant]
     Indication: RHEUMATOID ARTHRITIS
     Dosage: 35 MG, QD
     Route: 048
     Dates: start: 20110319
  12. TASIGNA [Suspect]
     Dosage: 400 MG,
     Route: 048
     Dates: start: 20110915, end: 20110927
  13. CARBOPLATIN [Suspect]
     Dosage: 642 MG,
     Dates: start: 20110817
  14. TAXOL [Suspect]
     Dosage: 230 MG,
     Dates: start: 20110817

REACTIONS (1)
  - UTERINE CANCER [None]
